FAERS Safety Report 13801180 (Version 4)
Quarter: 2017Q4

REPORT INFORMATION
  Report Type: Spontaneous
  Country: US (occurrence: US)
  Receive Date: 20170727
  Receipt Date: 20171018
  Transmission Date: 20180320
  Serious: No
  Sender: FDA-Public Use
  Company Number: US-PFIZER INC-2017325089

PATIENT
  Age: 4 Year
  Sex: Male
  Weight: 17.55 kg

DRUGS (2)
  1. RANITIDINE. [Concomitant]
     Active Substance: RANITIDINE
     Dosage: UNK UNK, 2X/DAY(150 MG/ 10MLSYRUP 1 TSP ORALLY BID)
     Route: 048
  2. CLINDAMYCIN. [Suspect]
     Active Substance: CLINDAMYCIN
     Indication: INFECTION
     Dosage: 5 ML, 3X/DAY
     Route: 048
     Dates: start: 20170515, end: 20170517

REACTIONS (12)
  - Chills [Unknown]
  - Vomiting [Unknown]
  - Muscle twitching [Unknown]
  - Stomatitis [Recovering/Resolving]
  - Abnormal behaviour [Unknown]
  - Abdominal pain [Unknown]
  - Heart rate increased [Unknown]
  - Pyrexia [Recovered/Resolved]
  - Infection [Unknown]
  - Dyskinesia [Unknown]
  - Malaise [Unknown]
  - Hallucination [Recovered/Resolved]
